FAERS Safety Report 12433210 (Version 5)
Quarter: 2016Q3

REPORT INFORMATION
  Report Type: Report from Study
  Country: DE (occurrence: CO)
  Receive Date: 20160603
  Receipt Date: 20160718
  Transmission Date: 20161109
  Serious: Yes (Death, Life-Threatening, Hospitalization, Other)
  Sender: FDA-Public Use
  Company Number: DE-ACTELION-A-NJ2016-137180

PATIENT
  Age: 37 Year
  Sex: Female

DRUGS (1)
  1. VENTAVIS [Suspect]
     Active Substance: ILOPROST
     Indication: PULMONARY ARTERIAL HYPERTENSION
     Dosage: 6 DF, QD
     Route: 055
     Dates: start: 20160507, end: 20160620

REACTIONS (8)
  - Condition aggravated [Fatal]
  - Medical device site reaction [Not Recovered/Not Resolved]
  - Sepsis [Fatal]
  - Product use issue [Unknown]
  - Respiratory disorder [Not Recovered/Not Resolved]
  - Headache [Not Recovered/Not Resolved]
  - Pulmonary hypertension [Fatal]
  - Rash [Not Recovered/Not Resolved]

NARRATIVE: CASE EVENT DATE: 20160507
